FAERS Safety Report 19510584 (Version 1)
Quarter: 2021Q3

REPORT INFORMATION
  Report Type: Report from Study
  Country: None (occurrence: US)
  Receive Date: 20210708
  Receipt Date: 20210708
  Transmission Date: 20211014
  Serious: Yes (Other)
  Sender: FDA-Public Use
  Company Number: US-ABBVIE-21K-163-3976090-00

PATIENT
  Age: 59 Year
  Sex: Female

DRUGS (1)
  1. RINVOQ [Suspect]
     Active Substance: UPADACITINIB
     Indication: RHEUMATOID ARTHRITIS
     Route: 048

REACTIONS (7)
  - Pain in extremity [Recovered/Resolved]
  - Asthenia [Not Recovered/Not Resolved]
  - Exostosis [Not Recovered/Not Resolved]
  - Thrombosis [Unknown]
  - Grip strength decreased [Not Recovered/Not Resolved]
  - Pain in extremity [Unknown]
  - Contusion [Not Recovered/Not Resolved]

NARRATIVE: CASE EVENT DATE: 20210701
